FAERS Safety Report 13270674 (Version 1)
Quarter: 2017Q1

REPORT INFORMATION
  Report Type: Other
  Country: GB (occurrence: US)
  Receive Date: 20170225
  Receipt Date: 20170225
  Transmission Date: 20170428
  Serious: Yes (Hospitalization, Other)
  Sender: FDA-Public Use
  Company Number: US-INTERNATIONAL MEDICATION SYSTEMS, LIMITED-1063595

PATIENT
  Age: 59 Year
  Sex: Female
  Weight: 59 kg

DRUGS (6)
  1. ROPIVACAINE HCL [Suspect]
     Active Substance: ROPIVACAINE HYDROCHLORIDE
  2. LIDOCAINE 1% (SKIN INFILTRATION) [Suspect]
     Active Substance: LIDOCAINE
  3. BUPIVACAINE HCL [Suspect]
     Active Substance: BUPIVACAINE HYDROCHLORIDE
  4. LIDOCAINE 1.5% (BOLUS) [Suspect]
     Active Substance: LIDOCAINE
     Indication: NERVE BLOCK
  5. EPINEPHRINE. [Concomitant]
     Active Substance: EPINEPHRINE
  6. CHLORHEXIDINE [Concomitant]
     Active Substance: CHLORHEXIDINE

REACTIONS (3)
  - Myositis [Recovering/Resolving]
  - Hypotension [Unknown]
  - Dizziness [Unknown]
